FAERS Safety Report 6515995-X (Version None)
Quarter: 2009Q4

REPORT INFORMATION
  Report Type: 
  Country: None (occurrence: None)
  Receive Date: 20091211
  Receipt Date: 20090923
  Transmission Date: 20100525
  Serious: Yes (Other)
  Sender: FDA-Public Use
  Company Number: SPV1-2009-01881

PATIENT
  Sex: Male

DRUGS (1)
  1. MAS         (MIXED AMPHETAMINE SALTS) [Suspect]
     Indication: DRUG USE FOR UNKNOWN INDICATION
     Dosage: 10 MG

REACTIONS (1)
  - CONVULSION [None]
